FAERS Safety Report 4995474-1 (Version None)
Quarter: 2006Q1

REPORT INFORMATION
  Report Type: 
  Country: None (occurrence: None)
  Receive Date: 20060315
  Receipt Date: 20060102
  Transmission Date: 20060701
  Serious: Yes (Other)
  Sender: FDA-Public Use
  Company Number: 431250

PATIENT
  Age: 89 Year
  Sex: Female

DRUGS (1)
  1. BONIVA [Suspect]
     Dates: start: 20051215

REACTIONS (5)
  - ASTHENIA [None]
  - CHROMATURIA [None]
  - CONFUSIONAL STATE [None]
  - DIARRHOEA [None]
  - EATING DISORDER [None]
